FAERS Safety Report 17915509 (Version 1)
Quarter: 2020Q2

REPORT INFORMATION
  Report Type: Spontaneous
  Country: CA (occurrence: CA)
  Receive Date: 20200619
  Receipt Date: 20200619
  Transmission Date: 20200714
  Serious: Yes (Life-Threatening)
  Sender: FDA-Public Use
  Company Number: CA-ROCHE-2625362

PATIENT
  Age: 5 Year
  Sex: Male
  Weight: 20 kg

DRUGS (38)
  1. ETOPOSIDE. [Suspect]
     Active Substance: ETOPOSIDE
     Indication: BURKITT^S LYMPHOMA
     Dosage: 3.0 DAYS
     Route: 042
  2. METHOTREXATE. [Suspect]
     Active Substance: METHOTREXATE
     Indication: PRODUCT USED FOR UNKNOWN INDICATION
     Dosage: 47.0 DAYS
     Route: 037
  3. FLUCONAZOLE. [Concomitant]
     Active Substance: FLUCONAZOLE
  4. ONDANSETRON [Concomitant]
     Active Substance: ONDANSETRON
     Route: 065
  5. DIPHENHYDRAMINE. [Concomitant]
     Active Substance: DIPHENHYDRAMINE
     Route: 065
  6. FUROSEMIDE. [Concomitant]
     Active Substance: FUROSEMIDE
  7. HEPARIN CALCIUM [Concomitant]
     Active Substance: HEPARIN CALCIUM
  8. METRONIDAZOLE. [Concomitant]
     Active Substance: METRONIDAZOLE
  9. CYTARABINE. [Suspect]
     Active Substance: CYTARABINE
     Indication: BURKITT^S LYMPHOMA
     Dosage: 51.0 DAYS
     Route: 042
  10. ETOPOSIDE. [Suspect]
     Active Substance: ETOPOSIDE
     Dosage: 3.0 DAYS
     Route: 042
  11. CLONIDINE. [Concomitant]
     Active Substance: CLONIDINE
  12. HYDROMORPHONE [Concomitant]
     Active Substance: HYDROMORPHONE
  13. MOXIFLOXACIN. [Concomitant]
     Active Substance: MOXIFLOXACIN
     Route: 065
  14. MYCAMINE [Concomitant]
     Active Substance: MICAFUNGIN SODIUM
  15. SULFAMETHOXAZOLE AND TRIMETHOPRIM [Concomitant]
     Active Substance: SULFAMETHOXAZOLE\TRIMETHOPRIM
     Route: 065
  16. RITUXAN [Suspect]
     Active Substance: RITUXIMAB
     Indication: BURKITT^S LYMPHOMA
     Route: 042
  17. METHOTREXATE. [Suspect]
     Active Substance: METHOTREXATE
     Route: 037
  18. FILGRASTIM [Concomitant]
     Active Substance: FILGRASTIM
  19. FOLIC ACID. [Concomitant]
     Active Substance: FOLIC ACID
     Route: 065
  20. TOBRAMYCIN. [Concomitant]
     Active Substance: TOBRAMYCIN
     Route: 065
  21. HYDROCORTISONE. [Suspect]
     Active Substance: HYDROCORTISONE
     Indication: BURKITT^S LYMPHOMA
     Dosage: 47.0 DAYS
     Route: 037
  22. EPINEPHRINE. [Concomitant]
     Active Substance: EPINEPHRINE
  23. HYDROXYZINE [Concomitant]
     Active Substance: HYDROXYZINE HYDROCHLORIDE
  24. MEROPENEM. [Concomitant]
     Active Substance: MEROPENEM
  25. METOCLOPRAMIDE. [Concomitant]
     Active Substance: METOCLOPRAMIDE
  26. PENTAMIDINE ISETHIONATE. [Concomitant]
     Active Substance: PENTAMIDINE ISETHIONATE
     Route: 065
  27. POLYETHYLENE GLYCOL [MACROGOL] [Concomitant]
     Active Substance: POLYETHYLENE GLYCOLS
     Route: 065
  28. ACETAMINOPHEN. [Concomitant]
     Active Substance: ACETAMINOPHEN
     Route: 065
  29. CEFTAZIDIME. [Concomitant]
     Active Substance: CEFTAZIDIME
  30. DEXAMETHASONE. [Concomitant]
     Active Substance: DEXAMETHASONE
  31. KETAMINE [Concomitant]
     Active Substance: KETAMINE
     Route: 065
  32. PIPERACILLIN AND TAZOBACTAM [Concomitant]
     Active Substance: PIPERACILLIN SODIUM\TAZOBACTAM SODIUM
  33. POTASSIUM [Concomitant]
     Active Substance: POTASSIUM
  34. CYTARABINE. [Suspect]
     Active Substance: CYTARABINE
     Dosage: 51.0 DAYS
     Route: 042
  35. CETIRIZINE [Concomitant]
     Active Substance: CETIRIZINE HYDROCHLORIDE
  36. CIPROFLOXACIN. [Concomitant]
     Active Substance: CIPROFLOXACIN
  37. DIMENHYDRINATE. [Concomitant]
     Active Substance: DIMENHYDRINATE
  38. VANCOMYCIN [Concomitant]
     Active Substance: VANCOMYCIN
     Route: 065

REACTIONS (3)
  - Transfusion [Unknown]
  - Aplastic anaemia [Unknown]
  - Febrile bone marrow aplasia [Unknown]
